FAERS Safety Report 9407816 (Version 1)
Quarter: 2013Q2

REPORT INFORMATION
  Report Type: Spontaneous
  Country: CH (occurrence: None)
  Receive Date: 20130422
  Receipt Date: 20130422
  Transmission Date: 20140414
  Serious: Yes (Hospitalization)
  Sender: FDA-Public Use
  Company Number: 7205046

PATIENT
  Age: 76 Year
  Sex: Male

DRUGS (5)
  1. EUTHYROX [Suspect]
     Indication: HYPOTHYROIDISM
     Dosage: (100 MCG, 1 IN 1 D)
     Route: 048
  2. ATORVASTATIN [Concomitant]
  3. FINASTERIDE (FINASTERIDE) (FINASTERIDE) [Concomitant]
  4. XATRAL (ALFUZOSIN) (TABLET) (ALFUZOSIN) [Concomitant]
  5. VALIUM (DIAZEPAM) (TABLET) (DIAZEPAM) [Concomitant]

REACTIONS (3)
  - Atrial flutter [None]
  - Atrial fibrillation [None]
  - Tachycardia [None]
